FAERS Safety Report 6463327-8 (Version None)
Quarter: 2009Q4

REPORT INFORMATION
  Report Type: 
  Country: None (occurrence: None)
  Receive Date: 20091130
  Receipt Date: 20090709
  Transmission Date: 20100525
  Serious: Yes (Hospitalization)
  Sender: FDA-Public Use
  Company Number: US-AMGEN-QUU352707

PATIENT
  Sex: Female
  Weight: 49.5 kg

DRUGS (10)
  1. ENBREL [Suspect]
     Indication: RHEUMATOID ARTHRITIS
     Route: 058
     Dates: start: 19981228, end: 20090201
  2. METHOTREXATE [Suspect]
     Dates: start: 19980301, end: 20000101
  3. PLAQUENIL [Concomitant]
     Dates: start: 19970124, end: 19980301
  4. ASACOL [Concomitant]
     Dates: start: 19970507
  5. CLIMARA [Concomitant]
     Dates: start: 19971201
  6. FOLIC ACID [Concomitant]
     Dates: start: 19980301
  7. NORTRIPTYLINE [Concomitant]
  8. TPN [Concomitant]
  9. ACTONEL [Concomitant]
     Dates: start: 20010201, end: 20040413
  10. BONIVA [Concomitant]
     Route: 042
     Dates: start: 20071001

REACTIONS (1)
  - BRONCHIOLOALVEOLAR CARCINOMA [None]
